FAERS Safety Report 4747215-0 (Version None)
Quarter: 2005Q3

REPORT INFORMATION
  Report Type: 
  Country: None (occurrence: None)
  Receive Date: 20050815
  Receipt Date: 20050804
  Transmission Date: 20060218
  Serious: Yes (Other)
  Sender: FDA-Public Use
  Company Number: 2005-07-0242

PATIENT
  Age: 93 Year
  Sex: Female

DRUGS (2)
  1. IMDUR [Suspect]
     Dosage: SEE IMAGE
     Route: 048
  2. ISOSORBIDE MONONITRATE (WARRICK) EXTENDED RELEASE TABLE [Suspect]
     Dosage: ORAL
     Route: 048

REACTIONS (7)
  - ASTHENIA [None]
  - BILE DUCT STONE [None]
  - MALAISE [None]
  - PHARMACEUTICAL PRODUCT COMPLAINT [None]
  - POST PROCEDURAL COMPLICATION [None]
  - SLUGGISHNESS [None]
  - STOOL ANALYSIS ABNORMAL [None]
